FAERS Safety Report 23217743 (Version 2)
Quarter: 2023Q4

REPORT INFORMATION
  Report Type: Report from Study
  Country: US (occurrence: US)
  Receive Date: 20231122
  Receipt Date: 20231218
  Transmission Date: 20240109
  Serious: Yes (Hospitalization, Other)
  Sender: FDA-Public Use
  Company Number: US-ALXN-A202309424AA

PATIENT
  Sex: Male

DRUGS (1)
  1. ULTOMIRIS [Suspect]
     Active Substance: RAVULIZUMAB-CWVZ
     Indication: Myasthenia gravis
     Dosage: UNK
     Route: 065
     Dates: start: 20230614

REACTIONS (6)
  - Myasthenia gravis crisis [Not Recovered/Not Resolved]
  - Myasthenia gravis [Unknown]
  - Dyspnoea [Recovering/Resolving]
  - COVID-19 [Recovered/Resolved]
  - Insomnia [Recovering/Resolving]
  - Asthenia [Recovering/Resolving]
